FAERS Safety Report 13479963 (Version 2)
Quarter: 2017Q2

REPORT INFORMATION
  Report Type: Spontaneous
  Country: FI (occurrence: FI)
  Receive Date: 20170425
  Receipt Date: 20170504
  Transmission Date: 20170830
  Serious: Yes (Other)
  Sender: FDA-Public Use
  Company Number: FI-PFIZER INC-2017140745

PATIENT
  Sex: Male

DRUGS (14)
  1. SOMAC [Interacting]
     Active Substance: PANTOPRAZOLE SODIUM
     Dosage: 20 MG, UNK
     Route: 048
     Dates: start: 20170202
  2. CANDESARTAN. [Interacting]
     Active Substance: CANDESARTAN
     Dosage: UNK
     Route: 048
  3. CANDESARTAN. [Interacting]
     Active Substance: CANDESARTAN
     Dosage: 12 MG, QD
     Route: 048
  4. SOMAC [Interacting]
     Active Substance: PANTOPRAZOLE SODIUM
     Dosage: UNK
     Dates: start: 20170330
  5. CANDESARTAN. [Interacting]
     Active Substance: CANDESARTAN
     Indication: BLOOD PRESSURE INCREASED
     Dosage: 8 MG, UNK
     Route: 048
     Dates: start: 201512
  6. VITAMIN D /00107901/ [Concomitant]
     Active Substance: ERGOCALCIFEROL
     Dosage: UNK
  7. SOMAC [Suspect]
     Active Substance: PANTOPRAZOLE SODIUM
     Indication: GASTROOESOPHAGEAL REFLUX DISEASE
     Dosage: 40 MG, UNK
     Route: 048
  8. CANDESARTAN. [Interacting]
     Active Substance: CANDESARTAN
     Dosage: 24 MG, QD
     Route: 048
     Dates: start: 201512
  9. LANSOPRAZOLE. [Interacting]
     Active Substance: LANSOPRAZOLE
     Indication: GASTROOESOPHAGEAL REFLUX DISEASE
     Dosage: 20 MG, UNK
     Route: 048
  10. SOMAC [Interacting]
     Active Substance: PANTOPRAZOLE SODIUM
     Dosage: UNK
     Dates: start: 20170330
  11. SOMAC [Interacting]
     Active Substance: PANTOPRAZOLE SODIUM
     Dosage: 20 MG, UNK
     Dates: start: 20170330
  12. NEXIUM [Interacting]
     Active Substance: ESOMEPRAZOLE MAGNESIUM
     Indication: GASTROOESOPHAGEAL REFLUX DISEASE
     Dosage: UNK
     Route: 048
  13. MAGNESIUM [Concomitant]
     Active Substance: MAGNESIUM
     Dosage: UNK
  14. BISOPROLOL [Concomitant]
     Active Substance: BISOPROLOL
     Dosage: UNK

REACTIONS (4)
  - Arrhythmia [Unknown]
  - Heart rate decreased [Unknown]
  - Blood pressure increased [Recovering/Resolving]
  - Drug interaction [Recovering/Resolving]
